FAERS Safety Report 12869875 (Version 2)
Quarter: 2016Q4

REPORT INFORMATION
  Report Type: Spontaneous
  Country: US (occurrence: US)
  Receive Date: 20161021
  Receipt Date: 20161024
  Transmission Date: 20170207
  Serious: No
  Sender: FDA-Public Use
  Company Number: US-PFIZER INC-2016491882

PATIENT
  Age: 40 Year
  Sex: Female
  Weight: 65.76 kg

DRUGS (3)
  1. SABRIL [Concomitant]
     Active Substance: VIGABATRIN
     Indication: EPILEPSY
     Dosage: 500 MG, UNK
     Dates: start: 201609
  2. LYRICA [Suspect]
     Active Substance: PREGABALIN
     Indication: EPILEPSY
     Dosage: 150 MG, 2X/DAY
  3. TOPAMAX [Concomitant]
     Active Substance: TOPIRAMATE
     Indication: SEIZURE
     Dosage: 300 MG, UNK
     Dates: start: 2008

REACTIONS (5)
  - Pruritus [Not Recovered/Not Resolved]
  - Pain [Unknown]
  - Nausea [Unknown]
  - Headache [Unknown]
  - Poor quality sleep [Unknown]

NARRATIVE: CASE EVENT DATE: 20161018
